FAERS Safety Report 6960271-4 (Version None)
Quarter: 2010Q3

REPORT INFORMATION
  Report Type: 
  Country: None (occurrence: None)
  Receive Date: 20100901
  Receipt Date: 20100819
  Transmission Date: 20110219
  Serious: Yes (Other)
  Sender: FDA-Public Use
  Company Number: FR-SANOFI-AVENTIS-2010SA049788

PATIENT
  Age: 57 Year
  Sex: Male

DRUGS (3)
  1. PLAVIX [Suspect]
     Indication: MYOCARDIAL INFARCTION
     Route: 048
     Dates: start: 20100601
  2. KARDEGIC [Concomitant]
     Indication: MYOCARDIAL INFARCTION
     Route: 048
     Dates: start: 20100601
  3. MORPHINE [Concomitant]
     Indication: PAIN

REACTIONS (7)
  - ARTHRALGIA [None]
  - BURNING SENSATION [None]
  - DYSPNOEA [None]
  - OEDEMA PERIPHERAL [None]
  - PARAESTHESIA [None]
  - RASH ERYTHEMATOUS [None]
  - SWELLING [None]
